FAERS Safety Report 7319461-3 (Version None)
Quarter: 2011Q1

REPORT INFORMATION
  Report Type: 
  Country: None (occurrence: None)
  Receive Date: 20110228
  Receipt Date: 20100402
  Transmission Date: 20110831
  Serious: No
  Sender: FDA-Public Use
  Company Number: A0853224A

PATIENT
  Age: 15 Year
  Sex: Female

DRUGS (3)
  1. ATOMOXETINE HCL [Concomitant]
  2. LAMOTRIGINE [Suspect]
     Dosage: 75MG PER DAY
     Route: 048
     Dates: start: 20100201, end: 20100331
  3. RISPERIDONE [Concomitant]

REACTIONS (4)
  - FACE OEDEMA [None]
  - RASH [None]
  - ACNE [None]
  - OEDEMA PERIPHERAL [None]
